FAERS Safety Report 9542253 (Version 1)
Quarter: 2013Q3

REPORT INFORMATION
  Report Type: Spontaneous
  Country: GB (occurrence: None)
  Receive Date: 20130918
  Receipt Date: 20130918
  Transmission Date: 20140515
  Serious: Yes (Other)
  Sender: FDA-Public Use
  Company Number: CO-OR-UK-2013-061

PATIENT
  Age: 61 Year
  Sex: Male

DRUGS (4)
  1. PREDNISOLONE (PREDNISOLONE) [Suspect]
     Indication: RENAL TRANSPLANT
  2. TACROLIMUS (TACROLIMUS) [Suspect]
     Indication: RENAL TRANSPLANT
  3. MYCOPHENOLATE MOFETIL (MYCOPHENOLATE MOFETIL) [Suspect]
     Indication: RENAL TRANSPLANT
     Dates: end: 2010
  4. AZATHIOPRINE (AZATHIOPRINE) [Suspect]
     Indication: RENAL TRANSPLANT
     Dates: start: 2010

REACTIONS (1)
  - Breast cancer [None]
